FAERS Safety Report 9046197 (Version 2)
Quarter: 2013Q1

REPORT INFORMATION
  Report Type: Spontaneous
  Country: US (occurrence: US)
  Receive Date: 20130201
  Receipt Date: 20130205
  Transmission Date: 20140127
  Serious: No
  Sender: FDA-Public Use
  Company Number: US-B.I. PHARMACEUTICALS,INC./RIDGEFIELD-2013-BI-02785BP

PATIENT
  Sex: Male
  Weight: 118 kg

DRUGS (5)
  1. SPIRIVA [Suspect]
     Indication: CHRONIC OBSTRUCTIVE PULMONARY DISEASE
     Dosage: 18 MCG
     Route: 055
     Dates: start: 201101
  2. BISOPROLOL [Concomitant]
     Indication: HYPERTENSION
     Dosage: 10 MG
     Route: 048
  3. VENLAFAXINE [Concomitant]
     Indication: ANXIETY
     Dosage: 37.5 MG
     Route: 048
  4. VALPROIC ACID [Concomitant]
     Indication: AFFECTIVE DISORDER
     Dosage: 250 MG
     Route: 048
  5. PROAIR HFA [Concomitant]
     Indication: DYSPNOEA
     Route: 055

REACTIONS (3)
  - Dyspnoea [Not Recovered/Not Resolved]
  - Product quality issue [Not Recovered/Not Resolved]
  - Product quality issue [Not Recovered/Not Resolved]
